FAERS Safety Report 24069590 (Version 1)
Quarter: 2024Q3

REPORT INFORMATION
  Report Type: Spontaneous
  Country: US (occurrence: US)
  Receive Date: 20240710
  Receipt Date: 20240710
  Transmission Date: 20241016
  Serious: No
  Sender: ROCHE
  Company Number: US-ROCHE-3433814

PATIENT
  Sex: Female

DRUGS (1)
  1. ALECENSA [Suspect]
     Active Substance: ALECTINIB HYDROCHLORIDE
     Indication: Malignant connective tissue neoplasm
     Route: 048
     Dates: start: 202309

REACTIONS (4)
  - Constipation [Unknown]
  - Muscle fatigue [Unknown]
  - Myalgia [Unknown]
  - Off label use [Unknown]
